FAERS Safety Report 9178316 (Version 2)
Quarter: 2013Q2

REPORT INFORMATION
  Report Type: Report from Study
  Country: AR (occurrence: AR)
  Receive Date: 20130321
  Receipt Date: 20130415
  Transmission Date: 20140414
  Serious: Yes (Death, Hospitalization)
  Sender: FDA-Public Use
  Company Number: AR-BRISTOL-MYERS SQUIBB COMPANY-18701623

PATIENT
  Age: 80 Year
  Sex: Male

DRUGS (3)
  1. ERBITUX SOLN FOR INF 5MG/ML [Suspect]
     Indication: COLORECTAL CANCER METASTATIC
     Dosage: RECENT 11JAN2013
     Route: 042
     Dates: start: 20121109, end: 20130207
  2. OXALIPLATIN [Suspect]
     Indication: COLORECTAL CANCER METASTATIC
     Dosage: 14 DAYS EVERY 21 DAYSRECENT 10JAN13
     Dates: start: 20121012, end: 20130202
  3. CAPECITABINE [Suspect]
     Indication: COLORECTAL CANCER METASTATIC
     Dosage: RECENT 10JAN13.
     Dates: start: 20121012, end: 20130110

REACTIONS (1)
  - Dehydration [Fatal]
